FAERS Safety Report 8915699 (Version 2)
Quarter: 2013Q1

REPORT INFORMATION
  Report Type: Spontaneous
  Country: US (occurrence: US)
  Receive Date: 20121119
  Receipt Date: 20130207
  Transmission Date: 20140127
  Serious: Yes (Death, Hospitalization, Other)
  Sender: FDA-Public Use
  Company Number: US-INCYTE CORPORATION-2012IN002324

PATIENT
  Age: 64 Year
  Sex: Female
  Weight: 57.6 kg

DRUGS (3)
  1. JAKAFI [Suspect]
     Indication: ACUTE MYELOID LEUKAEMIA
     Dosage: 15 MG, BID
     Route: 048
     Dates: start: 20121009, end: 20121029
  2. JAKAFI [Suspect]
     Indication: MYELOFIBROSIS
  3. VICODIN [Concomitant]

REACTIONS (5)
  - Acute leukaemia [Fatal]
  - Blood count abnormal [Unknown]
  - Haemoglobin decreased [Unknown]
  - Platelet count decreased [Unknown]
  - Epistaxis [Recovered/Resolved]
